FAERS Safety Report 8150933-8 (Version None)
Quarter: 2012Q1

REPORT INFORMATION
  Report Type: 
  Country: None (occurrence: None)
  Receive Date: 20120220
  Receipt Date: 20120207
  Transmission Date: 20120608
  Serious: Yes (Hospitalization, Other)
  Sender: FDA-Public Use
  Company Number: SE-ABBOTT-12P-150-0902423-00

PATIENT
  Sex: Male

DRUGS (9)
  1. ASACOL [Concomitant]
     Indication: PRODUCT USED FOR UNKNOWN INDICATION
  2. CYKLOKAPRON [Concomitant]
     Indication: PRODUCT USED FOR UNKNOWN INDICATION
  3. HUMIRA [Suspect]
     Indication: INFLAMMATORY BOWEL DISEASE
     Route: 058
     Dates: start: 20110718, end: 20120107
  4. HUMIRA [Suspect]
     Indication: ARTHROPATHY
     Dates: start: 20120101
  5. TRAMADOL HCL [Concomitant]
     Indication: PRODUCT USED FOR UNKNOWN INDICATION
  6. PAPAVERINE [Concomitant]
     Indication: PRODUCT USED FOR UNKNOWN INDICATION
     Dosage: 2-3 TABLETS AS NEEDED
  7. ARCOXIA [Suspect]
     Indication: PRODUCT USED FOR UNKNOWN INDICATION
     Dosage: CONTINUOUS DOSING OF NSAID, 1 IN 1 D
  8. MIANSERIN [Concomitant]
     Indication: PRODUCT USED FOR UNKNOWN INDICATION
  9. OMEPRAZOLE [Concomitant]
     Indication: PRODUCT USED FOR UNKNOWN INDICATION

REACTIONS (10)
  - GASTROINTESTINAL HAEMORRHAGE [None]
  - DIARRHOEA [None]
  - C-REACTIVE PROTEIN INCREASED [None]
  - LARGE INTESTINAL ULCER HAEMORRHAGE [None]
  - WOUND [None]
  - GASTROINTESTINAL DISORDER [None]
  - INTESTINAL ULCER [None]
  - ABDOMINAL PAIN [None]
  - LARGE INTESTINAL ULCER [None]
  - PYREXIA [None]
